FAERS Safety Report 7257569-1 (Version None)
Quarter: 2011Q1

REPORT INFORMATION
  Report Type: 
  Country: None (occurrence: None)
  Receive Date: 20110129
  Receipt Date: 20100602
  Transmission Date: 20110831
  Serious: No
  Sender: FDA-Public Use
  Company Number: US-ABBOTT-10P-163-0649216-00

PATIENT
  Sex: Female
  Weight: 57.204 kg

DRUGS (1)
  1. HUMIRA [Suspect]
     Indication: RHEUMATOID ARTHRITIS
     Route: 058
     Dates: start: 20100301, end: 20100401

REACTIONS (4)
  - SWELLING FACE [None]
  - LOCAL SWELLING [None]
  - RHINORRHOEA [None]
  - DYSPHONIA [None]
